FAERS Safety Report 8687721 (Version 3)
Quarter: 2013Q4

REPORT INFORMATION
  Report Type: Spontaneous
  Country: US (occurrence: US)
  Receive Date: 20120727
  Receipt Date: 20131101
  Transmission Date: 20140711
  Serious: No
  Sender: FDA-Public Use
  Company Number: US-009507513-2012SP023390

PATIENT
  Sex: Male
  Weight: 101.15 kg

DRUGS (6)
  1. CLARITIN REDITABS [Suspect]
     Indication: HYPERSENSITIVITY
     Dosage: UNK UNK, PRN
     Route: 048
     Dates: start: 2008
  2. CLARITIN REDITABS [Suspect]
     Indication: MEDICAL OBSERVATION
  3. [COMPOSITION UNSPECIFIED] [Concomitant]
     Indication: HYPERSENSITIVITY
     Dosage: UNK UNK, UNKNOWN
  4. PALIPERIDONE [Concomitant]
     Indication: SCHIZOAFFECTIVE DISORDER
     Dosage: UNK UNK, UNKNOWN
  5. CHOLECALCIFEROL [Concomitant]
     Indication: PRODUCT USED FOR UNKNOWN INDICATION
     Dosage: UNK UNK, UNKNOWN
  6. OMEGA-3 MARINE TRIGLYCERIDES [Concomitant]
     Indication: PRODUCT USED FOR UNKNOWN INDICATION
     Dosage: UNK UNK, UNKNOWN

REACTIONS (1)
  - Therapeutic product ineffective [Recovered/Resolved]
